FAERS Safety Report 8589594-2 (Version None)
Quarter: 2012Q3

REPORT INFORMATION
  Report Type: 
  Country: None (occurrence: None)
  Receive Date: 20120813
  Receipt Date: 20120802
  Transmission Date: 20120928
  Serious: Yes (Death, Hospitalization)
  Sender: FDA-Public Use
  Company Number: DE-ROCHE-1080632

PATIENT
  Sex: Male

DRUGS (8)
  1. DACLATASVIR [Suspect]
     Indication: HEPATITIS C
     Route: 048
     Dates: start: 20120223, end: 20120608
  2. COPEGUS [Suspect]
     Indication: HEPATITIS C
     Route: 048
     Dates: start: 20120223, end: 20120608
  3. COTRIM D.S. [Concomitant]
     Dates: start: 20110629
  4. REYATAZ [Concomitant]
     Dates: start: 20120202
  5. TRUVADA [Concomitant]
     Dates: start: 20110705
  6. PEGASYS [Suspect]
     Indication: HEPATITIS C
     Route: 058
     Dates: start: 20120223, end: 20120608
  7. NORVIR [Concomitant]
     Dates: start: 20111123
  8. METOCLOPRAMIDE [Concomitant]
     Dates: start: 20111027

REACTIONS (2)
  - PANCYTOPENIA [None]
  - CARDIAC FAILURE CONGESTIVE [None]
